FAERS Safety Report 4640492-6 (Version None)
Quarter: 2005Q2

REPORT INFORMATION
  Report Type: 
  Country: None (occurrence: None)
  Receive Date: 20050419
  Receipt Date: 20050407
  Transmission Date: 20051028
  Serious: Yes (Hospitalization)
  Sender: FDA-Public Use
  Company Number: TPA2005A00390

PATIENT
  Age: 77 Year
  Sex: Female
  Weight: 77.1115 kg

DRUGS (8)
  1. ACTOS [Suspect]
     Dosage: SEE IMAGE
     Route: 048
  2. LASIX [Concomitant]
  3. POTASSIUM ACETATE [Concomitant]
  4. SYNTHROID [Concomitant]
  5. ALTACE [Concomitant]
  6. COREG [Concomitant]
  7. ZETIA [Concomitant]
  8. IRON WITH B12 (IRON W/VITAMINS NOS) [Concomitant]

REACTIONS (5)
  - ARRHYTHMIA [None]
  - ATRIAL FIBRILLATION [None]
  - CARDIAC OPERATION [None]
  - HEAD INJURY [None]
  - PROCEDURAL COMPLICATION [None]
